FAERS Safety Report 14700847 (Version 5)
Quarter: 2018Q3

REPORT INFORMATION
  Report Type: Report from Study
  Country: US (occurrence: US)
  Receive Date: 20180330
  Receipt Date: 20180828
  Transmission Date: 20181010
  Serious: Yes (Hospitalization)
  Sender: FDA-Public Use
  Company Number: US-EISAI MEDICAL RESEARCH-EC-2018-037562

PATIENT
  Age: 58 Year
  Sex: Female
  Weight: 38.3 kg

DRUGS (4)
  1. OXYCODONE [Concomitant]
     Active Substance: OXYCODONE
  2. EVEROLIMUS. [Suspect]
     Active Substance: EVEROLIMUS
     Indication: RENAL CELL CARCINOMA
     Route: 048
     Dates: start: 20180326, end: 20180409
  3. LENVATINIB [Suspect]
     Active Substance: LENVATINIB
     Indication: RENAL CELL CARCINOMA
     Route: 048
     Dates: start: 20180326, end: 20180409
  4. GABAPENTIN. [Concomitant]
     Active Substance: GABAPENTIN

REACTIONS (1)
  - Tumour pain [Recovered/Resolved]

NARRATIVE: CASE EVENT DATE: 20180329
